FAERS Safety Report 4383479-3 (Version None)
Quarter: 2004Q2

REPORT INFORMATION
  Report Type: 
  Country: None (occurrence: None)
  Receive Date: 20040623
  Receipt Date: 20040615
  Transmission Date: 20050107
  Serious: Yes (Hospitalization)
  Sender: FDA-Public Use
  Company Number: 200416019GDDC

PATIENT
  Age: 88 Year
  Sex: Male

DRUGS (5)
  1. FUROSEMIDE [Suspect]
     Indication: OEDEMA
     Route: 048
     Dates: end: 20040504
  2. AMILORIDE [Suspect]
     Route: 048
  3. THYROXINE [Concomitant]
     Indication: HYPOTHYROIDISM
     Route: 048
  4. ADCAL-D3 [Concomitant]
     Indication: OSTEOPOROSIS
     Route: 048
  5. VENLAFAXINE [Concomitant]
     Indication: DEPRESSION
     Route: 048

REACTIONS (2)
  - POLYURIA [None]
  - RENAL FAILURE ACUTE [None]
